FAERS Safety Report 8267012-1 (Version None)
Quarter: 2012Q2

REPORT INFORMATION
  Report Type: 
  Country: None (occurrence: None)
  Receive Date: 20120409
  Receipt Date: 20120403
  Transmission Date: 20120825
  Serious: No
  Sender: FDA-Public Use
  Company Number: US-PFIZER INC-2012084638

PATIENT
  Sex: Male

DRUGS (2)
  1. LUNESTA [Concomitant]
     Indication: SLEEP DISORDER
     Dosage: UNK
  2. PRISTIQ [Suspect]
     Indication: DEPRESSION
     Dosage: 50 MG, 1X/DAY
     Route: 048
     Dates: start: 20090428

REACTIONS (1)
  - DRUG RESISTANCE [None]
